FAERS Safety Report 18928297 (Version 3)
Quarter: 2021Q1

REPORT INFORMATION
  Report Type: Spontaneous
  Country: DE (occurrence: DE)
  Receive Date: 20210223
  Receipt Date: 20210329
  Transmission Date: 20210420
  Serious: Yes (Death)
  Sender: FDA-Public Use
  Company Number: DE-PFIZER INC-2021172689

PATIENT
  Age: 78 Year
  Sex: Male

DRUGS (12)
  1. SPIRONOLACTON 1A PHARMA [Concomitant]
     Dosage: 1 DF, 1X/DAY
  2. MACROGOL [Concomitant]
     Active Substance: POLYETHYLENE GLYCOLS
  3. VYNDAQEL [Suspect]
     Active Substance: TAFAMIDIS MEGLUMINE
     Indication: CARDIAC AMYLOIDOSIS
     Dosage: 61 MG, 1X/DAY
     Route: 048
     Dates: start: 20210209
  4. ELIQUIS [Concomitant]
     Active Substance: APIXABAN
     Indication: ATRIAL FIBRILLATION
     Dosage: 1 DF, 2X/DAY
     Route: 048
  5. BISOPROLOL 1A PHARMA [Concomitant]
     Active Substance: BISOPROLOL
     Dosage: 1 DF, 1X/DAY
  6. RANEXA [Concomitant]
     Active Substance: RANOLAZINE
     Dosage: 1 DF, 2X/DAY
  7. PANTOPRAZOLE SODIUM. [Concomitant]
     Active Substance: PANTOPRAZOLE SODIUM
     Dosage: 1 DF, 1X/DAY
  8. ATORVASTATIN 1 A PHARMA [Concomitant]
     Active Substance: ATORVASTATIN CALCIUM
     Dosage: 1 DF, 1X/DAY
  9. TORASEMID?1A PHARMA [Concomitant]
     Active Substance: TORSEMIDE
     Dosage: 1 DF, 1X/DAY
  10. RAMILICH [Concomitant]
     Active Substance: RAMIPRIL
     Dosage: 1 DF, 1X/DAY
  11. LAXANS?RATIOPHARM PICO [Concomitant]
  12. RETACRIT [EPOETIN ZETA] [Concomitant]
     Active Substance: ERYTHROPOIETIN

REACTIONS (3)
  - Sepsis [Fatal]
  - Right ventricular failure [Fatal]
  - Renal failure [Fatal]

NARRATIVE: CASE EVENT DATE: 20210210
